FAERS Safety Report 11119969 (Version 1)
Quarter: 2015Q2

REPORT INFORMATION
  Report Type: Spontaneous
  Country: US (occurrence: US)
  Receive Date: 20150518
  Receipt Date: 20150518
  Transmission Date: 20150821
  Serious: No
  Sender: FDA-Public Use
  Company Number: US-BAUSCH-BL-2015-000024

PATIENT
  Age: 55 Year
  Sex: Female
  Weight: 68.1 kg

DRUGS (2)
  1. CLARITIN [Concomitant]
     Active Substance: LORATADINE
     Indication: PRODUCT USED FOR UNKNOWN INDICATION
  2. ELIDEL [Suspect]
     Active Substance: PIMECROLIMUS
     Indication: EYE INFECTION
     Dosage: APPLY TOPICALLY TO DIRECTED AREA
     Route: 061
     Dates: start: 20141230, end: 20141230

REACTIONS (2)
  - Application site pain [Recovering/Resolving]
  - Rash [Recovering/Resolving]

NARRATIVE: CASE EVENT DATE: 20141230
